FAERS Safety Report 8052637-9 (Version None)
Quarter: 2012Q1

REPORT INFORMATION
  Report Type: 
  Country: None (occurrence: None)
  Receive Date: 20120118
  Receipt Date: 20120111
  Transmission Date: 20120608
  Serious: Yes (Hospitalization, Other)
  Sender: FDA-Public Use
  Company Number: US-ASTELLAS-2011US006467

PATIENT
  Sex: Male
  Weight: 81 kg

DRUGS (12)
  1. AMLODIPINE [Concomitant]
     Indication: PRODUCT USED FOR UNKNOWN INDICATION
     Dosage: UNK
     Route: 065
  2. FOLIC ACID [Concomitant]
     Indication: PRODUCT USED FOR UNKNOWN INDICATION
     Dosage: UNK
     Route: 065
  3. CITALOPRAM [Concomitant]
     Indication: PRODUCT USED FOR UNKNOWN INDICATION
     Dosage: UNK
     Route: 065
  4. ZOCOR [Concomitant]
     Indication: PRODUCT USED FOR UNKNOWN INDICATION
     Dosage: UNK
     Route: 065
  5. ERLOTINIB HYDROCHLORIDE [Suspect]
     Indication: NON-SMALL CELL LUNG CANCER STAGE IV
     Dosage: 100 MG, CYCLIC (QD DAYS 2-16)
     Route: 048
     Dates: start: 20110404, end: 20111009
  6. TAMSULOSIN HCL [Concomitant]
     Indication: PRODUCT USED FOR UNKNOWN INDICATION
     Dosage: UNK
     Route: 065
  7. ALIMTA [Suspect]
     Indication: NON-SMALL CELL LUNG CANCER STAGE IV
     Dosage: 375 MG/M2, Q3W
     Route: 042
     Dates: start: 20110404, end: 20110928
  8. MORPHINE [Suspect]
     Indication: PAIN
     Dosage: UNK
     Route: 065
  9. CLINDAMYCIN [Concomitant]
     Indication: PRODUCT USED FOR UNKNOWN INDICATION
     Dosage: UNK
     Route: 065
  10. LOMOTIL [Concomitant]
     Indication: PRODUCT USED FOR UNKNOWN INDICATION
     Dosage: UNK
     Route: 065
  11. DOXYCYCLINE [Concomitant]
     Indication: PRODUCT USED FOR UNKNOWN INDICATION
     Dosage: UNK
     Route: 065
  12. GABAPENTIN [Concomitant]
     Indication: PRODUCT USED FOR UNKNOWN INDICATION
     Dosage: UNK
     Route: 065

REACTIONS (17)
  - OESOPHAGEAL ULCER [None]
  - INCORRECT DOSE ADMINISTERED [None]
  - INAPPROPRIATE SCHEDULE OF DRUG ADMINISTRATION [None]
  - RENAL FAILURE ACUTE [None]
  - PNEUMONIA [None]
  - HYPOAESTHESIA [None]
  - VOMITING [None]
  - ANAEMIA [None]
  - STOMATITIS [None]
  - MENTAL STATUS CHANGES [None]
  - GASTRITIS HAEMORRHAGIC [None]
  - DIARRHOEA [None]
  - BLOOD CREATININE INCREASED [None]
  - DEHYDRATION [None]
  - HYPOPHAGIA [None]
  - PANCYTOPENIA [None]
  - NAUSEA [None]
